FAERS Safety Report 7374991-3 (Version None)
Quarter: 2011Q1

REPORT INFORMATION
  Report Type: 
  Country: None (occurrence: None)
  Receive Date: 20110317
  Receipt Date: 20110308
  Transmission Date: 20110831
  Serious: Yes (Other)
  Sender: FDA-Public Use
  Company Number: B0705838A

PATIENT
  Sex: Female

DRUGS (1)
  1. LAMOTRIGINE (FORMULATION UNKNOW) (GENERIC) (LAMOTRIGINE) [Suspect]
     Indication: EPILEPSY

REACTIONS (3)
  - DRUG EXPOSURE DURING PREGNANCY [None]
  - ABORTION SPONTANEOUS [None]
  - PREGNANCY [None]
